FAERS Safety Report 11170046 (Version 1)
Quarter: 2015Q2

REPORT INFORMATION
  Report Type: Spontaneous
  Country: CA (occurrence: CA)
  Receive Date: 20150608
  Receipt Date: 20150608
  Transmission Date: 20150821
  Serious: Yes (Death)
  Sender: FDA-Public Use
  Company Number: CA-009507513-1506CAN000074

PATIENT
  Sex: Male

DRUGS (1)
  1. TEMODAL [Suspect]
     Active Substance: TEMOZOLOMIDE
     Indication: GLIOBLASTOMA
     Dosage: 120 MG, QD (EVERY DAY X 21 DAYS, 7 DAYS OFF)
     Route: 048
     Dates: start: 20131219

REACTIONS (1)
  - Death [Fatal]
